FAERS Safety Report 14187669 (Version 1)
Quarter: 2017Q4

REPORT INFORMATION
  Report Type: Spontaneous
  Country: US (occurrence: US)
  Receive Date: 20171114
  Receipt Date: 20171114
  Transmission Date: 20180321
  Serious: No
  Sender: FDA-Public Use
  Company Number: US-BAUSCH-BL-2017-019896

PATIENT
  Sex: Male

DRUGS (2)
  1. RETIN-A [Suspect]
     Active Substance: TRETINOIN
     Indication: SKIN DISCOLOURATION
     Route: 061
     Dates: start: 201704, end: 2017
  2. RETIN-A [Suspect]
     Active Substance: TRETINOIN
     Dosage: YEARS AGO
     Route: 061
     Dates: start: 201704, end: 2017

REACTIONS (7)
  - Drug ineffective [Unknown]
  - Application site pain [Recovered/Resolved]
  - Skin discolouration [Not Recovered/Not Resolved]
  - Treatment noncompliance [Unknown]
  - Rash macular [Recovered/Resolved]
  - Application site exfoliation [Recovered/Resolved]
  - Drug interaction [Unknown]

NARRATIVE: CASE EVENT DATE: 2017
